FAERS Safety Report 5833574-4 (Version None)
Quarter: 2008Q3

REPORT INFORMATION
  Report Type: 
  Country: None (occurrence: None)
  Receive Date: 20080805
  Receipt Date: 20080725
  Transmission Date: 20090109
  Serious: Yes (Death)
  Sender: FDA-Public Use
  Company Number: US-ROCHE-577821

PATIENT
  Sex: Male

DRUGS (8)
  1. MYCOPHENOLATE MOFETIL [Suspect]
     Route: 065
     Dates: start: 20060401
  2. MYCOPHENOLATE MOFETIL [Suspect]
     Route: 065
     Dates: start: 20070101, end: 20080627
  3. NEORAL [Concomitant]
     Indication: TRANSPLANT REJECTION
     Dates: end: 20080627
  4. PREDNISONE [Concomitant]
     Indication: TRANSPLANT REJECTION
     Dates: end: 20080627
  5. FOSAMAX [Concomitant]
     Dates: end: 20080627
  6. FLOMAX [Concomitant]
     Indication: ILL-DEFINED DISORDER
     Dates: end: 20080627
  7. PRAVACHOL [Concomitant]
     Dates: end: 20080627
  8. 1 CONCOMITANT DRUG [Concomitant]
     Dosage: DRUG REPORTED AS BLOOD SUGAR MEDICATION
     Dates: end: 20080627

REACTIONS (1)
  - OESOPHAGEAL CANCER METASTATIC [None]
